FAERS Safety Report 7903052-7 (Version None)
Quarter: 2011Q4

REPORT INFORMATION
  Report Type: 
  Country: None (occurrence: None)
  Receive Date: 20111104
  Receipt Date: 20111025
  Transmission Date: 20120403
  Serious: Yes (Hospitalization)
  Sender: FDA-Public Use
  Company Number: 2011SP050176

PATIENT
  Age: 65 Year
  Sex: Male

DRUGS (14)
  1. HYDROCODONE BITARTRATE [Concomitant]
  2. VITAMIN C /00008001/ [Concomitant]
  3. MULTIVITAMIN /00097801/ [Concomitant]
  4. LEVETIRACETAM [Concomitant]
  5. TAMSULOSIN HCL [Concomitant]
  6. SULFAMETHOXAZOLE AND TRIMETHOPRIM [Concomitant]
  7. ACETAMINOPHEN [Concomitant]
  8. HYDROXIZINE [Concomitant]
  9. VITAMIN B /00056102/ [Concomitant]
  10. TEMODAR [Suspect]
     Indication: GLIOBLASTOMA MULTIFORME
     Dosage: 140 MG;QD;IV
     Route: 042
     Dates: start: 20110606, end: 20110718
  11. ESOMEPRAZOLE MAGNESIUM [Concomitant]
  12. ATORVASTATIN CALCIUM [Concomitant]
  13. FISH OIL [Concomitant]
  14. GLUCOSAMINE [Concomitant]

REACTIONS (3)
  - PULMONARY THROMBOSIS [None]
  - SYNCOPE [None]
  - FALL [None]
